FAERS Safety Report 4915284-0 (Version None)
Quarter: 2006Q1

REPORT INFORMATION
  Report Type: 
  Country: None (occurrence: None)
  Receive Date: 20060217
  Receipt Date: 20030113
  Transmission Date: 20060701
  Serious: Yes (Hospitalization)
  Sender: FDA-Public Use
  Company Number: US-GLAXOSMITHKLINE-A0392977A

PATIENT
  Sex: Male

DRUGS (1)
  1. LOTRONEX [Suspect]
     Indication: IRRITABLE BOWEL SYNDROME
     Dosage: 1MG PER DAY
     Route: 048
     Dates: start: 20000713, end: 20001107

REACTIONS (8)
  - ABDOMINAL PAIN [None]
  - AFFECTIVE DISORDER [None]
  - ANXIETY [None]
  - CONSTIPATION [None]
  - DISABILITY [None]
  - GASTROINTESTINAL DISORDER [None]
  - INJURY [None]
  - VOMITING [None]
